FAERS Safety Report 9115896 (Version 2)
Quarter: 2013Q1

REPORT INFORMATION
  Report Type: Spontaneous
  Country: JP (occurrence: JP)
  Receive Date: 20130225
  Receipt Date: 20130315
  Transmission Date: 20140127
  Serious: Yes (Other)
  Sender: FDA-Public Use
  Company Number: JP-GLAXOSMITHKLINE-B0860877A

PATIENT
  Age: 55 Year
  Sex: Female

DRUGS (5)
  1. VALTREX [Suspect]
     Indication: HERPES ZOSTER
     Dosage: 1000MG THREE TIMES PER DAY
     Route: 048
     Dates: start: 20121227, end: 20130102
  2. VALTREX [Suspect]
     Indication: HERPES ZOSTER
     Route: 048
     Dates: start: 20130103
  3. ZOVIRAX [Concomitant]
     Indication: HERPES ZOSTER
     Route: 061
     Dates: start: 20121227, end: 20130131
  4. SENNARIDE [Concomitant]
     Dosage: 12MG THREE TIMES PER DAY
     Route: 048
     Dates: start: 20050401, end: 20130201
  5. MYSLEE [Concomitant]
     Dosage: 5MG PER DAY
     Route: 048
     Dates: start: 20080808, end: 20130201

REACTIONS (13)
  - Dyspnoea [Recovered/Resolved]
  - Cold sweat [Recovered/Resolved]
  - Mental disorder [Recovered/Resolved]
  - Peripheral coldness [Recovering/Resolving]
  - Abdominal pain upper [Recovered/Resolved]
  - Decreased appetite [Recovered/Resolved]
  - Flank pain [Recovered/Resolved]
  - Mobility decreased [Unknown]
  - Feeling cold [Unknown]
  - Dyspnoea exertional [Unknown]
  - Fatigue [Unknown]
  - Abdominal symptom [Unknown]
  - Gastric disorder [Unknown]
